FAERS Safety Report 17681290 (Version 5)
Quarter: 2023Q2

REPORT INFORMATION
  Report Type: Spontaneous
  Country: HU (occurrence: HU)
  Receive Date: 20200417
  Receipt Date: 20230525
  Transmission Date: 20230722
  Serious: Yes (Hospitalization)
  Sender: FDA-Public Use
  Company Number: None

PATIENT
  Age: 12 Year
  Sex: Male

DRUGS (2)
  1. AZITHROMYCIN [Suspect]
     Active Substance: AZITHROMYCIN
     Indication: Pneumonia
     Dosage: UNK
     Route: 065
  2. AMOXICILLIN\CLAVULANIC ACID [Suspect]
     Active Substance: AMOXICILLIN\CLAVULANIC ACID
     Indication: Pneumonia
     Dosage: UNK
     Route: 042

REACTIONS (9)
  - Mouth swelling [Recovered/Resolved]
  - Swelling of eyelid [Recovered/Resolved]
  - Sensation of foreign body [Recovered/Resolved]
  - Hypersensitivity [Recovered/Resolved]
  - Thrombocytosis [Recovered/Resolved]
  - Stevens-Johnson syndrome [Recovered/Resolved]
  - Aphthous ulcer [Recovering/Resolving]
  - Conjunctivitis [Recovering/Resolving]
  - Skin lesion [Recovering/Resolving]
